FAERS Safety Report 13002587 (Version 1)
Quarter: 2016Q4

REPORT INFORMATION
  Report Type: Spontaneous
  Country: US (occurrence: US)
  Receive Date: 20161206
  Receipt Date: 20161206
  Transmission Date: 20170207
  Serious: Yes (Hospitalization, Other)
  Sender: FDA-Public Use
  Company Number: US-009507513-1611USA014227

PATIENT
  Age: 61 Year
  Sex: Female

DRUGS (10)
  1. KEYTRUDA [Suspect]
     Active Substance: PEMBROLIZUMAB
     Indication: BREAST CANCER METASTATIC
     Dosage: 105 MG, Q3W (EVERY THREE WEEKS)
     Route: 042
     Dates: start: 20160826, end: 20161115
  2. MORPHINE [Concomitant]
     Active Substance: MORPHINE
  3. NORCO [Concomitant]
     Active Substance: ACETAMINOPHEN\HYDROCODONE BITARTRATE
  4. FENTANYL. [Concomitant]
     Active Substance: FENTANYL
  5. CARBOPLATIN. [Concomitant]
     Active Substance: CARBOPLATIN
  6. PREDNISONE. [Concomitant]
     Active Substance: PREDNISONE
  7. PHENERGAN [Concomitant]
     Active Substance: PROMETHAZINE HYDROCHLORIDE
  8. ATIVAN [Concomitant]
     Active Substance: LORAZEPAM
  9. MIRALAX [Concomitant]
     Active Substance: POLYETHYLENE GLYCOL 3350
  10. TRAZODONE HYDROCHLORIDE. [Concomitant]
     Active Substance: TRAZODONE HYDROCHLORIDE

REACTIONS (6)
  - Malignant neoplasm progression [Unknown]
  - Constipation [Unknown]
  - Abdominal distension [Unknown]
  - Intestinal obstruction [Unknown]
  - Product use issue [Unknown]
  - Gastrointestinal disorder [Unknown]

NARRATIVE: CASE EVENT DATE: 20160826
